FAERS Safety Report 8895638 (Version 1)
Quarter: 2012Q4

REPORT INFORMATION
  Report Type: 
  Country: US (occurrence: US)
  Receive Date: 20121108
  Receipt Date: 20121108
  Transmission Date: 20130627
  Serious: No
  Sender: FDA-Public Use
  Company Number: US-BAYER-2012-115444

PATIENT
  Age: 91 Year
  Sex: Male
  Weight: 77.1 kg

DRUGS (6)
  1. ALEVE CAPLET/TABLET,MIDOL EXTENDED RELIEF CAPLET [Suspect]
     Indication: GENERAL BODY PAIN
     Dosage: 1 DF, UNK
     Route: 048
     Dates: start: 201209
  2. BAYER ASPIRIN REGIMEN ADULT LOW STRENGTH [Concomitant]
     Dosage: 1 UNK, UNK
  3. PAROXETINE [Concomitant]
  4. VYTORIN [Concomitant]
  5. RANITIDINE [Concomitant]
  6. LORAZEPAM [Concomitant]

REACTIONS (2)
  - Drug ineffective [None]
  - Incorrect drug administration duration [None]
